FAERS Safety Report 9230520 (Version 1)
Quarter: 2013Q1

REPORT INFORMATION
  Report Type: Spontaneous
  Country: US (occurrence: None)
  Receive Date: 20121031
  Receipt Date: 20121031
  Transmission Date: 20140127
  Serious: No
  Sender: FDA-Public Use
  Company Number: PHEH2012US016966

PATIENT
  Sex: Male

DRUGS (1)
  1. GILENYA [Suspect]
     Route: 048
     Dates: start: 20120601

REACTIONS (5)
  - Fatigue [None]
  - Speech disorder [None]
  - Disturbance in attention [None]
  - Movement disorder [None]
  - Amnesia [None]
